FAERS Safety Report 9822509 (Version 2)
Quarter: 2014Q1

REPORT INFORMATION
  Report Type: Spontaneous
  Country: US (occurrence: US)
  Receive Date: 20140116
  Receipt Date: 20140116
  Transmission Date: 20141002
  Serious: No
  Sender: FDA-Public Use
  Company Number: US-ORAPHARMA-QUINORA-2012-015

PATIENT
  Sex: 0

DRUGS (4)
  1. ARESTIN [Suspect]
     Indication: PERIODONTAL DISEASE
     Dosage: 3 DF, ONE TIME DOSE
     Route: 061
     Dates: start: 20120315, end: 20120315
  2. ARESTIN [Suspect]
     Dosage: UNK
     Route: 061
     Dates: start: 2012
  3. ASPIRIN [Concomitant]
     Indication: PROPHYLAXIS
     Dosage: 62.5 MG, QD
     Route: 048
  4. VITAMINS NOS [Concomitant]
     Dosage: UNK, QD
     Route: 048

REACTIONS (1)
  - Haemorrhage [Recovered/Resolved]
